FAERS Safety Report 6838055-7 (Version None)
Quarter: 2010Q3

REPORT INFORMATION
  Report Type: 
  Country: None (occurrence: None)
  Receive Date: 20100713
  Receipt Date: 20070530
  Transmission Date: 20110219
  Serious: No
  Sender: FDA-Public Use
  Company Number: US-PFIZER INC-2007046117

PATIENT
  Sex: Female
  Weight: 76.7 kg

DRUGS (10)
  1. CHANTIX [Suspect]
     Indication: SMOKING CESSATION THERAPY
     Dates: start: 20070528
  2. THYROID TAB [Concomitant]
     Indication: THYROID DISORDER
  3. VERAPAMIL [Concomitant]
     Indication: HYPERTENSION
  4. CARDIZEM [Concomitant]
     Indication: HYPERTENSION
  5. MICARDIS [Concomitant]
     Indication: HYPERTENSION
  6. ELMIRON [Concomitant]
     Indication: CYSTITIS INTERSTITIAL
     Dates: start: 20070101
  7. PAXIL [Concomitant]
  8. CLONAZEPAM [Concomitant]
  9. AMBIEN [Concomitant]
  10. STATINS [Concomitant]

REACTIONS (4)
  - DIZZINESS [None]
  - EUPHORIC MOOD [None]
  - FATIGUE [None]
  - HEAD DISCOMFORT [None]
